FAERS Safety Report 6449299-0 (Version None)
Quarter: 2009Q4

REPORT INFORMATION
  Report Type: 
  Country: None (occurrence: None)
  Receive Date: 20091120
  Receipt Date: 20091106
  Transmission Date: 20100525
  Serious: No
  Sender: FDA-Public Use
  Company Number: US-B.I. PHARMACEUTICALS,INC./RIDGEFIELD-2009-BP-12935BP

PATIENT
  Age: 74 Year
  Sex: Male

DRUGS (1)
  1. FLOMAX [Suspect]
     Indication: MICTURITION DISORDER
     Dosage: 0.4 MG
     Route: 048
     Dates: start: 20060101, end: 20081101

REACTIONS (1)
  - MYASTHENIA GRAVIS [None]
